FAERS Safety Report 5115860-9 (Version None)
Quarter: 2006Q3

REPORT INFORMATION
  Report Type: 
  Country: None (occurrence: None)
  Receive Date: 20060927
  Receipt Date: 20060919
  Transmission Date: 20061208
  Serious: Yes (Other)
  Sender: FDA-Public Use
  Company Number: US-SANOFI-SYNTHELABO-A03200605804

PATIENT
  Sex: Female

DRUGS (3)
  1. SULFASALAZINE [Interacting]
     Indication: DRUG USE FOR UNKNOWN INDICATION
     Dosage: UNK
     Route: 048
  2. LANTUS [Interacting]
     Indication: DIABETES MELLITUS INSULIN-DEPENDENT
     Dosage: UNK
     Route: 058
     Dates: end: 20060101
  3. PLAQUENIL [Suspect]
     Indication: DRUG USE FOR UNKNOWN INDICATION
     Dosage: UNK
     Route: 048

REACTIONS (4)
  - DRUG INTERACTION [None]
  - HYPERGLYCAEMIA [None]
  - HYPOGLYCAEMIA [None]
  - SOMNOLENCE [None]
